FAERS Safety Report 7739648-5 (Version None)
Quarter: 2011Q3

REPORT INFORMATION
  Report Type: 
  Country: None (occurrence: None)
  Receive Date: 20110909
  Receipt Date: 20110218
  Transmission Date: 20111222
  Serious: No
  Sender: FDA-Public Use
  Company Number: US-BAYER-2011-016218

PATIENT
  Sex: Female

DRUGS (1)
  1. MIRENA [Suspect]
     Indication: CONTRACEPTION
     Dosage: 20 ?G/D, CONT
     Route: 015
     Dates: start: 20101001, end: 20110210

REACTIONS (4)
  - GENITAL HAEMORRHAGE [None]
  - OVARIAN CYST [None]
  - ABDOMINAL PAIN [None]
  - SMEAR CERVIX ABNORMAL [None]
